FAERS Safety Report 16938003 (Version 1)
Quarter: 2019Q4

REPORT INFORMATION
  Report Type: Spontaneous
  Country: CA (occurrence: CA)
  Receive Date: 20191019
  Receipt Date: 20191019
  Transmission Date: 20200122
  Serious: Yes (Other)
  Sender: FDA-Public Use
  Company Number: CA-AUROBINDO-AUR-APL-2019-067938

PATIENT
  Sex: Female

DRUGS (3)
  1. AMOXICILLIN. [Suspect]
     Active Substance: AMOXICILLIN
     Indication: AMNIORRHEXIS
     Dosage: UNK
     Route: 048
  2. BETAMETHASONE. [Suspect]
     Active Substance: BETAMETHASONE
     Indication: AMNIORRHEXIS
     Dosage: UNK
     Route: 065
  3. ERYTHROMYCIN. [Suspect]
     Active Substance: ERYTHROMYCIN
     Indication: AMNIORRHEXIS
     Dosage: UNK
     Route: 065

REACTIONS (2)
  - Premature delivery [Unknown]
  - Exposure during pregnancy [Unknown]
